FAERS Safety Report 6584813-6 (Version None)
Quarter: 2010Q1

REPORT INFORMATION
  Report Type: 
  Country: None (occurrence: None)
  Receive Date: 20100217
  Receipt Date: 20100205
  Transmission Date: 20100710
  Serious: No
  Sender: FDA-Public Use
  Company Number: US-JNJFOC-20100203979

PATIENT
  Sex: Male
  Weight: 15.88 kg

DRUGS (6)
  1. FENTANYL-100 [Suspect]
     Indication: PAIN
     Route: 062
  2. FENTANYL-100 [Suspect]
     Route: 062
  3. LYRICA [Concomitant]
     Indication: RESTLESS LEGS SYNDROME
     Route: 048
  4. LYRICA [Concomitant]
     Indication: HYPOAESTHESIA
     Route: 048
  5. VICODIN [Concomitant]
     Indication: PAIN
     Dosage: DOSE: 10/325 MG
     Route: 048
  6. XANAX [Concomitant]
     Indication: ANXIETY
     Route: 048

REACTIONS (5)
  - DRUG ADMINISTERED AT INAPPROPRIATE SITE [None]
  - DRUG INEFFECTIVE [None]
  - PRODUCT QUALITY ISSUE [None]
  - THERAPEUTIC RESPONSE DECREASED [None]
  - WRONG TECHNIQUE IN DRUG USAGE PROCESS [None]
